FAERS Safety Report 9188520 (Version 1)
Quarter: 2013Q1

REPORT INFORMATION
  Report Type: Spontaneous
  Country: JP (occurrence: JP)
  Receive Date: 20130325
  Receipt Date: 20130325
  Transmission Date: 20140127
  Serious: Yes (Hospitalization)
  Sender: FDA-Public Use
  Company Number: PHHY2011JP83861

PATIENT
  Age: 52 Year
  Sex: Female
  Weight: 37 kg

DRUGS (7)
  1. RIFAMPICIN SANDOZ [Suspect]
     Indication: LYMPH NODE TUBERCULOSIS
     Dosage: 450 MG, DAILY
     Route: 048
     Dates: start: 20100803, end: 20100915
  2. ETHAMBUTOL HYDROCHLORIDE [Concomitant]
     Indication: LYMPH NODE TUBERCULOSIS
     Dosage: 500 MG, Q48H
     Route: 048
     Dates: start: 20100803
  3. ETHAMBUTOL HYDROCHLORIDE [Concomitant]
     Dosage: 500 MG, Q72H
     Route: 048
     Dates: end: 20101215
  4. ISCOTIN [Concomitant]
     Indication: LYMPH NODE TUBERCULOSIS
     Dosage: 300 MG
     Route: 048
     Dates: start: 20100803
  5. PYRAMIDE [Concomitant]
     Indication: LYMPH NODE TUBERCULOSIS
     Dosage: 1.5 G, Q48H
     Route: 048
     Dates: start: 20100803
  6. PYRAMIDE [Concomitant]
     Dosage: 1.5 G, Q72H
     Route: 048
  7. CRAVIT [Concomitant]
     Dates: start: 20100915

REACTIONS (5)
  - Hypokalaemia [Recovered/Resolved]
  - Weight decreased [Recovered/Resolved]
  - Agranulocytosis [Recovered/Resolved]
  - Diarrhoea [Recovered/Resolved]
  - Visual impairment [Unknown]
